FAERS Safety Report 21089705 (Version 1)
Quarter: 2022Q3

REPORT INFORMATION
  Report Type: Spontaneous
  Country: MX (occurrence: MX)
  Receive Date: 20220715
  Receipt Date: 20220715
  Transmission Date: 20221026
  Serious: No
  Sender: FDA-Public Use
  Company Number: MX-ORGANON-O2207MEX000850

PATIENT
  Age: 21 Year
  Sex: Female

DRUGS (1)
  1. ETONOGESTREL [Suspect]
     Active Substance: ETONOGESTREL
     Dosage: 1 IMPLANT
     Route: 059

REACTIONS (5)
  - Implant site injury [Not Recovered/Not Resolved]
  - Eschar [Not Recovered/Not Resolved]
  - Implant site erythema [Not Recovered/Not Resolved]
  - Implant site discharge [Not Recovered/Not Resolved]
  - Foreign body reaction [Not Recovered/Not Resolved]

NARRATIVE: CASE EVENT DATE: 20220601
